FAERS Safety Report 16394237 (Version 1)
Quarter: 2019Q2

REPORT INFORMATION
  Report Type: Spontaneous
  Country: US (occurrence: US)
  Receive Date: 20190605
  Receipt Date: 20190605
  Transmission Date: 20190711
  Serious: No
  Sender: FDA-Public Use
  Company Number: US-BAYER-2019-108901

PATIENT
  Sex: Female

DRUGS (1)
  1. CLARITIN [Suspect]
     Active Substance: LORATADINE
     Indication: HYPERSENSITIVITY
     Dosage: UNK
     Dates: start: 20190530, end: 20190602

REACTIONS (4)
  - Tinnitus [Unknown]
  - Feeling abnormal [Unknown]
  - Dyspnoea [Unknown]
  - Insomnia [Unknown]

NARRATIVE: CASE EVENT DATE: 20190601
